FAERS Safety Report 15356808 (Version 2)
Quarter: 2019Q1

REPORT INFORMATION
  Report Type: Spontaneous
  Country: US (occurrence: US)
  Receive Date: 20180906
  Receipt Date: 20190307
  Transmission Date: 20190417
  Serious: No
  Sender: FDA-Public Use
  Company Number: US-SA-2018SA106605

PATIENT
  Age: 57 Year
  Sex: Female

DRUGS (17)
  1. ESZOPICLONE. [Concomitant]
     Active Substance: ESZOPICLONE
     Dosage: 3 MG, HS
     Route: 048
  2. PIMECROLIMUS. [Concomitant]
     Active Substance: PIMECROLIMUS
     Dosage: UNK UNK, BID
  3. DUPIXENT [Suspect]
     Active Substance: DUPILUMAB
     Indication: DERMATITIS ATOPIC
     Dosage: 300 MG,QOW
     Route: 058
     Dates: start: 20180329
  4. PREDNISONE. [Concomitant]
     Active Substance: PREDNISONE
     Dosage: 40 MG
  5. TOBRADEX [Concomitant]
     Active Substance: DEXAMETHASONE\TOBRAMYCIN
     Dosage: UNK
  6. HYDROCORTISONE. [Concomitant]
     Active Substance: HYDROCORTISONE
     Dosage: UNK
  7. FLURANDRENOLIDE. [Concomitant]
     Active Substance: FLURANDRENOLIDE
     Dosage: UNK UNK, QD
  8. MUPIROCIN. [Concomitant]
     Active Substance: MUPIROCIN
     Dosage: UNK UNK, BID
     Dates: start: 20130906, end: 20140627
  9. DESOXIMETASONE. [Concomitant]
     Active Substance: DESOXIMETASONE
  10. BETAMETHASONE. [Concomitant]
     Active Substance: BETAMETHASONE
     Dosage: UNK
  11. MECLIZINE [Concomitant]
     Active Substance: MECLIZINE HYDROCHLORIDE
     Dosage: 12.5 MG, TID
     Route: 048
  12. CLOBETASOL [Concomitant]
     Active Substance: CLOBETASOL
     Dosage: UNK UNK, BID
  13. DESONIDE. [Concomitant]
     Active Substance: DESONIDE
  14. HYDROXYZINE [Concomitant]
     Active Substance: HYDROXYZINE HYDROCHLORIDE
     Dosage: 25 MG, HS
  15. MOMETASONE FUROATE. [Concomitant]
     Active Substance: MOMETASONE FUROATE
  16. ZYRTEC [Concomitant]
     Active Substance: CETIRIZINE HYDROCHLORIDE
  17. CEPHALEXIN [CEFALEXIN] [Concomitant]
     Active Substance: CEPHALEXIN
     Dosage: 500 MG, BID
     Route: 048
     Dates: start: 20130906, end: 20130920

REACTIONS (12)
  - Depression [Unknown]
  - Anaemia [Unknown]
  - Injection site pruritus [Unknown]
  - Dermatitis [Unknown]
  - Arthralgia [Unknown]
  - Uterine leiomyoma [Unknown]
  - Psoriasis [Unknown]
  - Purulent discharge [Unknown]
  - Oropharyngeal pain [Unknown]
  - Fatigue [Unknown]
  - Swelling of eyelid [Unknown]
  - Insomnia [Unknown]

NARRATIVE: CASE EVENT DATE: 201211
